FAERS Safety Report 20907019 (Version 2)
Quarter: 2022Q3

REPORT INFORMATION
  Report Type: Report from Study
  Country: US (occurrence: US)
  Receive Date: 20220602
  Receipt Date: 20220804
  Transmission Date: 20221027
  Serious: Yes (Other)
  Sender: FDA-Public Use
  Company Number: US-TAKEDA-2022TUS036132

PATIENT
  Sex: Female

DRUGS (2)
  1. MARIBAVIR [Suspect]
     Active Substance: MARIBAVIR
     Indication: Product used for unknown indication
     Dosage: 400 MILLIGRAM, BID
     Route: 048
     Dates: start: 20220224
  2. CELLCEPT [Concomitant]
     Active Substance: MYCOPHENOLATE MOFETIL
     Route: 065

REACTIONS (6)
  - Cytomegalovirus infection [Recovering/Resolving]
  - Scoliosis [Unknown]
  - Condition aggravated [Unknown]
  - Insomnia [Unknown]
  - Cluster headache [Unknown]
  - Viral load increased [Recovering/Resolving]
